FAERS Safety Report 17200588 (Version 1)
Quarter: 2019Q4

REPORT INFORMATION
  Report Type: Spontaneous
  Country: MV (occurrence: MV)
  Receive Date: 20191226
  Receipt Date: 20191226
  Transmission Date: 20200122
  Serious: Yes (Other)
  Sender: FDA-Public Use
  Company Number: MV-B.I. PHARMACEUTICALS,INC./RIDGEFIELD-2019-BI-121569

PATIENT
  Age: 31 Year
  Sex: Female

DRUGS (5)
  1. NICARDIPINE [Concomitant]
     Active Substance: NICARDIPINE
     Indication: PRODUCT USED FOR UNKNOWN INDICATION
     Route: 065
  2. METOPROLOL. [Concomitant]
     Active Substance: METOPROLOL
     Indication: PRODUCT USED FOR UNKNOWN INDICATION
     Route: 065
  3. CATAPRESAN [Suspect]
     Active Substance: CLONIDINE
     Indication: HYPERTENSION
     Route: 065
  4. AMLODIPINE [Concomitant]
     Active Substance: AMLODIPINE BESYLATE
     Indication: PRODUCT USED FOR UNKNOWN INDICATION
     Route: 065
  5. LOSARTAN. [Concomitant]
     Active Substance: LOSARTAN
     Indication: PRODUCT USED FOR UNKNOWN INDICATION
     Route: 065

REACTIONS (7)
  - Polyarteritis nodosa [Recovered/Resolved]
  - Blood pressure increased [Recovered/Resolved]
  - Central nervous system vasculitis [Recovered/Resolved]
  - Bacterial sepsis [Recovered/Resolved]
  - Haemorrhagic cerebral infarction [Recovered/Resolved]
  - Left ventricular hypertrophy [Unknown]
  - Renal impairment [Unknown]
